FAERS Safety Report 21557955 (Version 1)
Quarter: 2022Q4

REPORT INFORMATION
  Report Type: Report from Study
  Country: JP (occurrence: JP)
  Receive Date: 20221106
  Receipt Date: 20221106
  Transmission Date: 20230112
  Serious: Yes (Death)
  Sender: FDA-Public Use
  Company Number: JP-BAYER-2022A137592

PATIENT
  Age: 70 Year
  Sex: Male
  Weight: 49.8 kg

DRUGS (7)
  1. RIVAROXABAN [Interacting]
     Active Substance: RIVAROXABAN
     Indication: Product used for unknown indication
     Dosage: DAILY DOSE 15 MG
     Route: 048
     Dates: start: 20180719, end: 20181116
  2. DULOXETINE [Interacting]
     Active Substance: DULOXETINE
     Dosage: DAILY DOSE 40 MG
     Dates: start: 20181009, end: 20181124
  3. ESZOPICLONE [Concomitant]
     Active Substance: ESZOPICLONE
     Dosage: UNK
  4. TRAMADOL HYDROCHLORIDE [Concomitant]
     Active Substance: TRAMADOL HYDROCHLORIDE
     Dosage: UNK
  5. VONOPRAZAN [Concomitant]
     Active Substance: VONOPRAZAN
     Dosage: UNK
  6. RAMELTEON [Concomitant]
     Active Substance: RAMELTEON
     Dosage: UNK
  7. LOXOPROFEN [Concomitant]
     Active Substance: LOXOPROFEN
     Dosage: UNK

REACTIONS (3)
  - Cerebral haemorrhage [Fatal]
  - Labelled drug-drug interaction medication error [Fatal]
  - Drug interaction [Fatal]

NARRATIVE: CASE EVENT DATE: 20181116
